FAERS Safety Report 10078484 (Version 1)
Quarter: 2014Q2

REPORT INFORMATION
  Report Type: Spontaneous
  Country: GB (occurrence: GB)
  Receive Date: 20140415
  Receipt Date: 20140415
  Transmission Date: 20141212
  Serious: Yes (Life-Threatening)
  Sender: FDA-Public Use
  Company Number: GB-GE HEALTHCARE MEDICAL DIAGNOSTICS-VISP-PR-1404S-0168

PATIENT
  Age: 53 Year
  Sex: Male
  Weight: 95 kg

DRUGS (10)
  1. VISIPAQUE [Suspect]
     Indication: PRODUCT USED FOR UNKNOWN INDICATION
     Dosage: DOSE NOT REPORTED
     Route: 065
     Dates: start: 20140325, end: 20140325
  2. VISIPAQUE [Suspect]
     Indication: DIAGNOSTIC PROCEDURE
  3. BIVALIRUDIN [Suspect]
     Dosage: DOSE NOT REPORTED
     Route: 042
     Dates: start: 20140325, end: 20140325
  4. TICAGRELOR [Suspect]
     Dosage: DOSE NOT REPORTED
     Route: 048
     Dates: start: 20140325
  5. ASPIRIN [Concomitant]
  6. ATENOLOL [Concomitant]
  7. ATORVASTATIN [Concomitant]
  8. ISOSORBIDE [Concomitant]
  9. LANSOPRAZOLE [Concomitant]
  10. RAMIPRIL [Concomitant]

REACTIONS (3)
  - Rash erythematous [Recovered/Resolved]
  - Swelling face [Recovered/Resolved]
  - Pruritus [Recovered/Resolved]
